FAERS Safety Report 17289349 (Version 2)
Quarter: 2020Q3

REPORT INFORMATION
  Report Type: Spontaneous
  Country: US (occurrence: US)
  Receive Date: 20200120
  Receipt Date: 20200810
  Transmission Date: 20201102
  Serious: No
  Sender: FDA-Public Use
  Company Number: US-HTU-2020US020049

PATIENT
  Sex: Female

DRUGS (1)
  1. VALCHLOR [Suspect]
     Active Substance: MECHLORETHAMINE
     Indication: CUTANEOUS T-CELL LYMPHOMA STAGE I
     Dosage: THIN COATING, QD
     Route: 061
     Dates: start: 20190926

REACTIONS (4)
  - Condition aggravated [Recovering/Resolving]
  - Application site irritation [Unknown]
  - Application site discolouration [Unknown]
  - Off label use [Unknown]
